FAERS Safety Report 12607816 (Version 2)
Quarter: 2016Q3

REPORT INFORMATION
  Report Type: Report from Study
  Country: US (occurrence: US)
  Receive Date: 20160729
  Receipt Date: 20160817
  Transmission Date: 20161109
  Serious: Yes (Other)
  Sender: FDA-Public Use
  Company Number: US-GILEAD-2016-0224689

PATIENT
  Age: 86 Year
  Sex: Female

DRUGS (1)
  1. IDELALISIB [Suspect]
     Active Substance: IDELALISIB
     Indication: NON-HODGKIN^S LYMPHOMA STAGE IV
     Dosage: 150 MG, BID
     Route: 048
     Dates: start: 20150107, end: 201607

REACTIONS (10)
  - Stomatitis [Recovering/Resolving]
  - Arthritis [Unknown]
  - Cheilitis [Recovering/Resolving]
  - Diarrhoea [Recovered/Resolved]
  - Off label use [Unknown]
  - Fatigue [Unknown]
  - Thrombosis [Unknown]
  - Rash pruritic [Unknown]
  - Hypersomnia [Unknown]
  - Urinary tract infection [Recovered/Resolved]

NARRATIVE: CASE EVENT DATE: 201607
